FAERS Safety Report 8744326 (Version 6)
Quarter: 2013Q2

REPORT INFORMATION
  Report Type: Report from Study
  Country: GB (occurrence: GB)
  Receive Date: 20120825
  Receipt Date: 20130527
  Transmission Date: 20140414
  Serious: Yes (Life-Threatening, Hospitalization)
  Sender: FDA-Public Use
  Company Number: GB-ACCORD-014457

PATIENT
  Age: 47 Year
  Sex: Male

DRUGS (10)
  1. DOCUSATE [Concomitant]
     Indication: CONSTIPATION
     Route: 048
     Dates: start: 201206
  2. MST CONTINUS [Concomitant]
     Indication: PAIN
     Route: 048
  3. BISACODYL [Concomitant]
     Indication: CONSTIPATION
     Route: 048
  4. OMEPRAZOLE [Concomitant]
     Indication: DUODENOGASTRIC REFLUX
     Route: 048
  5. INVESTIGATIONAL DRUG [Suspect]
     Indication: PANCREATIC CARCINOMA
     Dosage: DEFINITION OF THE INTERVAL: CYCLICAL
     Route: 023
     Dates: start: 20120525, end: 20120712
  6. GEMCITABINE [Suspect]
     Indication: PANCREATIC CARCINOMA
     Route: 042
     Dates: start: 20120525
  7. ORAMORPH [Concomitant]
     Indication: PAIN
     Dosage: DEFINITION OF THE INTERVAL: AS NECESSARY
     Route: 048
  8. BUSCOPAN [Concomitant]
     Indication: ABDOMINAL PAIN
     Route: 048
     Dates: start: 20120516
  9. METOCLOPRAMIDE [Concomitant]
     Indication: NAUSEA
     Route: 048
  10. AUGMENTIN [Concomitant]
     Indication: URINARY TRACT INFECTION
     Route: 042
     Dates: start: 20120702, end: 20120709

REACTIONS (2)
  - Cerebellar infarction [Recovered/Resolved with Sequelae]
  - Urinary tract infection [Recovered/Resolved]
